FAERS Safety Report 5025386-9 (Version None)
Quarter: 2006Q2

REPORT INFORMATION
  Report Type: 
  Country: None (occurrence: None)
  Receive Date: 20060426
  Receipt Date: 20060315
  Transmission Date: 20061013
  Serious: Yes (Other)
  Sender: FDA-Public Use
  Company Number: 2006007572

PATIENT
  Age: 60 Year
  Sex: Male
  Weight: 62.1428 kg

DRUGS (17)
  1. LYRICA [Suspect]
     Indication: DIABETIC NEUROPATHY
     Dates: start: 20051223
  2. OXYBUTYNIN CHLORIDE [Suspect]
     Indication: BLADDER DISORDER
     Dosage: 3 MG (3 MG, 2 IN 1 WK)
  3. GLYBURIDE [Concomitant]
  4. GLUCOPHAGE [Concomitant]
  5. DESIPRAMINE HCL [Concomitant]
  6. IBUPROFEN [Concomitant]
  7. FLAXSEED OIL (LINSEED OIL) [Concomitant]
  8. METAMUCIL ^PROCTER + GAMBLE^ (GLUCOSE MONOHYDRATE, ISPHAGULA HUSK) [Concomitant]
  9. B-50 (VITAMIN B NOS) [Concomitant]
  10. VITAMINS (VITAMINS) [Concomitant]
  11. FISH OIL (FISH OIL) [Concomitant]
  12. CRANBERRY (VACCINUM MACROCARPON) [Concomitant]
  13. COZAAR [Concomitant]
  14. LIPITOR [Concomitant]
  15. FAMOTIDINE [Concomitant]
  16. TERAZOSIN (TERAZOSIN) [Concomitant]
  17. ASPIRIN [Concomitant]

REACTIONS (7)
  - BLADDER DISORDER [None]
  - COUGH [None]
  - DRY MOUTH [None]
  - NEUROPATHY [None]
  - PAIN IN EXTREMITY [None]
  - SOMNOLENCE [None]
  - VISION BLURRED [None]
